FAERS Safety Report 4544819-5 (Version None)
Quarter: 2004Q4

REPORT INFORMATION
  Report Type: 
  Country: None (occurrence: None)
  Receive Date: 20041230
  Receipt Date: 20041221
  Transmission Date: 20050328
  Serious: No
  Sender: FDA-Public Use
  Company Number: B0362614A

PATIENT
  Age: 23 Year
  Sex: Male

DRUGS (1)
  1. LAMICTAL [Suspect]

REACTIONS (7)
  - AGITATION [None]
  - ANTICONVULSANT DRUG LEVEL ABOVE THERAPEUTIC [None]
  - BLOOD PRESSURE INCREASED [None]
  - CHOREA [None]
  - DYSKINESIA [None]
  - HEART RATE INCREASED [None]
  - OVERDOSE [None]
